FAERS Safety Report 18564106 (Version 1)
Quarter: 2020Q4

REPORT INFORMATION
  Report Type: Spontaneous
  Country: ZA (occurrence: ZA)
  Receive Date: 20201201
  Receipt Date: 20201201
  Transmission Date: 20210114
  Serious: Yes (Hospitalization)
  Sender: FDA-Public Use
  Company Number: ZA-NOVOPROD-769581

PATIENT
  Age: 50 Year
  Sex: Female

DRUGS (6)
  1. ESTROFEM (ESTRADIOL HEMIHYDRATE) [Suspect]
     Active Substance: ESTRADIOL HEMIHYDRATE
     Indication: HORMONE REPLACEMENT THERAPY
     Dosage: 1 MG
     Route: 065
  2. ATIVAN [Concomitant]
     Active Substance: LORAZEPAM
  3. GEODON [Concomitant]
     Active Substance: ZIPRASIDONE HYDROCHLORIDE\ZIPRASIDONE MESYLATE
  4. PREXUM PLUS [INDAPAMIDE;PERINDOPRIL ERBUMINE] [Concomitant]
     Active Substance: INDAPAMIDE\PERINDOPRIL ERBUMINE
  5. ELTROXIN [Concomitant]
     Active Substance: LEVOTHYROXINE
  6. ZOPIVANE [Concomitant]
     Active Substance: ZOPICLONE

REACTIONS (3)
  - Oral mucosal eruption [Unknown]
  - Throat lesion [Unknown]
  - Rash [Unknown]
